FAERS Safety Report 20868709 (Version 1)
Quarter: 2022Q2

REPORT INFORMATION
  Report Type: Spontaneous
  Country: US (occurrence: US)
  Receive Date: 20220524
  Receipt Date: 20220524
  Transmission Date: 20220721
  Serious: No
  Sender: FDA-Public Use
  Company Number: US-MYLANLABS-2022M1035487

PATIENT
  Age: 13 Year
  Sex: Female
  Weight: 58.97 kg

DRUGS (4)
  1. AMNESTEEM [Suspect]
     Active Substance: ISOTRETINOIN
     Indication: Acne
     Dosage: UNK
     Route: 048
  2. AMNESTEEM [Suspect]
     Active Substance: ISOTRETINOIN
     Dosage: 20 MILLIGRAM  (1 CAPSULE)  BID
     Route: 048
     Dates: start: 202201, end: 202204
  3. ALBUTEROL [Concomitant]
     Active Substance: ALBUTEROL
     Indication: Asthma
     Dosage: UNK
  4. NAPROXEN [Concomitant]
     Active Substance: NAPROXEN
     Indication: Pain management
     Dosage: UNK

REACTIONS (3)
  - Migraine [Unknown]
  - Visual impairment [Not Recovered/Not Resolved]
  - Headache [Not Recovered/Not Resolved]

NARRATIVE: CASE EVENT DATE: 20220101
